FAERS Safety Report 4584342-5 (Version None)
Quarter: 2005Q1

REPORT INFORMATION
  Report Type: 
  Country: None (occurrence: None)
  Receive Date: 20050216
  Receipt Date: 20050208
  Transmission Date: 20050727
  Serious: Yes (Life-Threatening)
  Sender: FDA-Public Use
  Company Number: PHBS2005TR02162

PATIENT
  Age: 5 Year
  Sex: Male

DRUGS (4)
  1. CYCLOSPORINE [Suspect]
     Indication: BONE MARROW TRANSPLANT
     Route: 065
  2. METHOTREXATE [Concomitant]
  3. BUSULFAN [Suspect]
     Indication: BONE MARROW CONDITIONING REGIMEN
     Route: 065
  4. CYCLOPHOSPHAMIDE [Concomitant]

REACTIONS (6)
  - ATHETOSIS [None]
  - DRUG TOXICITY [None]
  - EXTRADURAL ABSCESS [None]
  - FACIAL PALSY [None]
  - MASTOIDITIS [None]
  - OSTEOMYELITIS [None]
